FAERS Safety Report 24186070 (Version 1)
Quarter: 2024Q3

REPORT INFORMATION
  Report Type: Spontaneous
  Country: US (occurrence: US)
  Receive Date: 20240808
  Receipt Date: 20240808
  Transmission Date: 20241017
  Serious: No
  Sender: TEVA
  Company Number: US-TEVA-VS-3226429

PATIENT
  Age: 71 Year
  Sex: Female
  Weight: 51.26 kg

DRUGS (10)
  1. ARMODAFINIL [Suspect]
     Active Substance: ARMODAFINIL
     Indication: Somnolence
     Dosage: HALF TABLET (75MG) IN THE MORNING AND HALF TABLET (75 MG) IN THE AFTERNOON
     Route: 065
  2. PAXIL [Concomitant]
     Active Substance: PAROXETINE HYDROCHLORIDE
     Dosage: AT BEDTIME
  3. DICLOFENAC [Concomitant]
     Active Substance: DICLOFENAC
     Indication: Pain
  4. BACLOFEN [Concomitant]
     Active Substance: BACLOFEN
  5. TOPAMAX [Concomitant]
     Active Substance: TOPIRAMATE
  6. ACETAMINOPHEN [Concomitant]
     Active Substance: ACETAMINOPHEN
  7. special B-12 [Concomitant]
  8. prednisone pack [Concomitant]
  9. VITAMINS [Concomitant]
     Active Substance: VITAMINS
  10. CHLORDIAZEPOXIDE [Concomitant]
     Active Substance: CHLORDIAZEPOXIDE

REACTIONS (6)
  - Tremor [Unknown]
  - Asthenia [Unknown]
  - Feeling abnormal [Unknown]
  - Fatigue [Unknown]
  - Headache [Unknown]
  - Dizziness [Unknown]
